FAERS Safety Report 6568470-0 (Version None)
Quarter: 2010Q1

REPORT INFORMATION
  Report Type: 
  Country: None (occurrence: None)
  Receive Date: 20100203
  Receipt Date: 20100128
  Transmission Date: 20100710
  Serious: Yes (Other)
  Sender: FDA-Public Use
  Company Number: B0379247A

PATIENT
  Age: 60 Year
  Sex: Male

DRUGS (2)
  1. REQUIP [Suspect]
     Route: 048
  2. FRUSEMIDE [Concomitant]
     Route: 065

REACTIONS (3)
  - HALLUCINATION [None]
  - MENTAL DISORDER [None]
  - OEDEMA PERIPHERAL [None]
